FAERS Safety Report 13734488 (Version 1)
Quarter: 2017Q3

REPORT INFORMATION
  Report Type: Report from Study
  Country: NL (occurrence: NL)
  Receive Date: 20170709
  Receipt Date: 20170709
  Transmission Date: 20171127
  Serious: Yes (Death, Hospitalization, Other)
  Sender: FDA-Public Use
  Company Number: NL-AMGEN-NLDSL2017101331

PATIENT
  Age: 47 Year
  Sex: Female

DRUGS (1)
  1. XGEVA [Suspect]
     Active Substance: DENOSUMAB
     Indication: PRODUCT USED FOR UNKNOWN INDICATION
     Dosage: Q4WK
     Route: 065

REACTIONS (4)
  - Disease progression [Unknown]
  - Oedema [Unknown]
  - Death [Fatal]
  - Ascites [Unknown]

NARRATIVE: CASE EVENT DATE: 20170701
